FAERS Safety Report 8549223-0 (Version None)
Quarter: 2012Q3

REPORT INFORMATION
  Report Type: 
  Country: None (occurrence: None)
  Receive Date: 20120730
  Receipt Date: 20120725
  Transmission Date: 20120928
  Serious: Yes (Life-Threatening)
  Sender: FDA-Public Use
  Company Number: DE-ASTRAZENECA-2012SE52701

PATIENT
  Age: 510 Month
  Sex: Female

DRUGS (3)
  1. SEROQUEL XR [Suspect]
     Route: 048
     Dates: start: 20111101
  2. LOPAXONE [Concomitant]
  3. SERTRALINE HYDROCHLORIDE [Concomitant]
     Route: 048

REACTIONS (1)
  - HEPATIC FAILURE [None]
